FAERS Safety Report 10080918 (Version 2)
Quarter: 2014Q4

REPORT INFORMATION
  Report Type: Spontaneous
  Country: US (occurrence: US)
  Receive Date: 20140416
  Receipt Date: 20141114
  Transmission Date: 20150528
  Serious: Yes (Other)
  Sender: FDA-Public Use
  Company Number: US-SA-2014SA043165

PATIENT
  Age: 57 Year

DRUGS (2)
  1. PLAVIX [Suspect]
     Active Substance: CLOPIDOGREL BISULFATE
     Indication: STENT PLACEMENT
     Route: 065
     Dates: start: 20050527, end: 20070228
  2. ASPIRIN. [Concomitant]
     Active Substance: ASPIRIN
     Dates: start: 2004

REACTIONS (6)
  - Gastrointestinal haemorrhage [Not Recovered/Not Resolved]
  - Multiple injuries [Not Recovered/Not Resolved]
  - Type 2 diabetes mellitus [Unknown]
  - Renal failure [Unknown]
  - Proteinuria [Unknown]
  - Haemorrhage [Not Recovered/Not Resolved]

NARRATIVE: CASE EVENT DATE: 20070228
